FAERS Safety Report 13451289 (Version 2)
Quarter: 2017Q2

REPORT INFORMATION
  Report Type: Spontaneous
  Country: US (occurrence: US)
  Receive Date: 20170418
  Receipt Date: 20170505
  Transmission Date: 20170830
  Serious: No
  Sender: FDA-Public Use
  Company Number: US-009507513-1704USA007285

PATIENT
  Age: 77 Year
  Sex: Female

DRUGS (8)
  1. JANUMET [Suspect]
     Active Substance: METFORMIN HYDROCHLORIDE\SITAGLIPTIN PHOSPHATE
     Indication: DIABETES MELLITUS
     Dosage: 1 TABLET ( 50/1000 MG), TWO TIMES DAILY
     Route: 048
     Dates: end: 20170323
  2. ZETIA [Suspect]
     Active Substance: EZETIMIBE
     Dosage: UNK
     Route: 048
  3. FUROSEMIDE. [Concomitant]
     Active Substance: FUROSEMIDE
     Dosage: 1/DAILY
  4. ENTRESTO [Concomitant]
     Active Substance: SACUBITRIL\VALSARTAN
     Dosage: 2/DAILY
  5. METFORMIN [Concomitant]
     Active Substance: METFORMIN HYDROCHLORIDE
     Dosage: 2/DAILY
  6. JANUVIA [Suspect]
     Active Substance: SITAGLIPTIN PHOSPHATE
     Dosage: 100 MG, QD
     Route: 048
     Dates: start: 20170323
  7. CARVEDILOL. [Concomitant]
     Active Substance: CARVEDILOL
     Dosage: 2/DAILY
  8. BIDIL [Concomitant]
     Active Substance: HYDRALAZINE HYDROCHLORIDE\ISOSORBIDE DINITRATE
     Dosage: 2/DAILY

REACTIONS (4)
  - Tongue disorder [Recovering/Resolving]
  - Lip disorder [Recovering/Resolving]
  - Speech disorder [Unknown]
  - Dry mouth [Recovering/Resolving]
